FAERS Safety Report 15066024 (Version 4)
Quarter: 2018Q4

REPORT INFORMATION
  Report Type: Spontaneous
  Country: BE (occurrence: BE)
  Receive Date: 20180626
  Receipt Date: 20181023
  Transmission Date: 20190204
  Serious: Yes (Death, Life-Threatening, Other)
  Sender: FDA-Public Use
  Company Number: BE-MYLANLABS-2018M1035788

PATIENT
  Age: 40 Year
  Sex: Female

DRUGS (29)
  1. TACROLIMUS. [Suspect]
     Active Substance: TACROLIMUS
     Indication: IMMUNOSUPPRESSION
     Dosage: UNK,TROUGH LEVEL AT 6-8 NG/ML)
     Route: 065
  2. TACROLIMUS. [Suspect]
     Active Substance: TACROLIMUS
     Indication: INTESTINAL TRANSPLANT
     Dosage: UNK,(TROUGH LEVEL AT 15 NG/ML)
  3. SOLU-MEDROL [Suspect]
     Active Substance: METHYLPREDNISOLONE SODIUM SUCCINATE
     Dosage: 20 MG, QD
     Route: 042
  4. PROGRAFT [Suspect]
     Active Substance: TACROLIMUS
     Dosage: TAPERED WITHIN 3-12 MONTHS POST-TRANSPLANT TO 6-8 NG/ML UNK
     Route: 065
  5. COLIMYCINE                         /00013203/ [Concomitant]
     Active Substance: COLISTIMETHATE SODIUM
     Indication: THERAPEUTIC PROCEDURE
     Dosage: 2 X 10^6 UNITS, UNKNOWN FREQUENCY
     Route: 065
  6. IVEGAM CMV [Concomitant]
     Active Substance: HUMAN CYTOMEGALOVIRUS IMMUNE GLOBULIN
     Indication: INFECTION PROPHYLAXIS
     Dosage: 1 ML/KG, UNKNOWN FREQ.(AT DAYS 1, 7,14, 28, 42,70, AND 98)
  7. THYMOGLOBULIN [Suspect]
     Active Substance: LAPINE T-LYMPHOCYTE IMMUNE GLOBULIN
     Indication: INTESTINAL TRANSPLANT
     Dosage: 1.5 MG/KG, UNKNOWN FREQUENCY(4- 6 HPRETRANSPLANT UNTIL DAY 4)
     Route: 065
  8. IMURAN [Suspect]
     Active Substance: AZATHIOPRINE
     Indication: INTESTINAL TRANSPLANT
     Dosage: UNK,,0.5-1MG/KG,UNKNOWN FREQ.
  9. PROGRAFT [Suspect]
     Active Substance: TACROLIMUS
     Indication: IMMUNOSUPPRESSION
     Dosage: 15 NG/MG
     Route: 065
  10. TAZOCIN [Concomitant]
     Active Substance: PIPERACILLIN SODIUM\TAZOBACTAM SODIUM
     Indication: INFECTION PROPHYLAXIS
     Dosage: 12 G, QD
     Route: 065
  11. DIPEPTIVEN [Concomitant]
     Active Substance: ALANYL GLUTAMINE
     Dosage: 20 G, BID
  12. BACTRIM [Concomitant]
     Active Substance: SULFAMETHOXAZOLE\TRIMETHOPRIM
     Indication: INFECTION PROPHYLAXIS
     Dosage: 80 MG, UNKNOWN FREQ. (EVERY 2 DAYS)
  13. ALANYL GLUTAMINE [Concomitant]
     Active Substance: ALANYL GLUTAMINE
     Indication: PRODUCT USED FOR UNKNOWN INDICATION
     Dosage: 20 MG, QD
     Route: 065
  14. ALITRAQ                            /07499801/ [Concomitant]
     Indication: PRODUCT USED FOR UNKNOWN INDICATION
     Dosage: 76 G, UNK ENTERALLY
  15. AZATHIOPRINE. [Suspect]
     Active Substance: AZATHIOPRINE
     Indication: INTESTINAL TRANSPLANT
  16. THYMOGLOBULIN [Suspect]
     Active Substance: LAPINE T-LYMPHOCYTE IMMUNE GLOBULIN
     Indication: IMMUNOSUPPRESSION
  17. SOLU-MEDROL [Suspect]
     Active Substance: METHYLPREDNISOLONE SODIUM SUCCINATE
     Dosage: UNK
  18. MEDROL [Suspect]
     Active Substance: METHYLPREDNISOLONE
     Indication: IMMUNOSUPPRESSION
     Dosage: 16 MG, UNK (TAPERED TOWARD 4MG OR LOWER WITHIN 3-12 MONTHS POST TRANSPLANT WHICH WAS CONTINUED THERE
     Route: 048
  19. AMPHOTERICIN B, LIPOSOME [Concomitant]
     Active Substance: AMPHOTERICIN B
     Indication: INFECTION PROPHYLAXIS
     Dosage: 3 MG/KG, QD
     Route: 065
  20. SOLU-MEDROL [Suspect]
     Active Substance: METHYLPREDNISOLONE SODIUM SUCCINATE
     Dosage: 16 MG, UNK
     Route: 065
  21. NYSTATINE [Concomitant]
     Indication: THERAPEUTIC PROCEDURE
     Dosage: 5 ML, UNK
     Route: 065
  22. DIFLUCAN [Concomitant]
     Active Substance: FLUCONAZOLE
     Indication: INFECTION PROPHYLAXIS
     Dosage: 6 MG, QD
     Route: 065
  23. MEDROL [Suspect]
     Active Substance: METHYLPREDNISOLONE
     Indication: INTESTINAL TRANSPLANT
     Dosage: 16 MG, UNK
     Route: 048
  24. TOBRAMYCINE                        /00304201/ [Concomitant]
     Indication: THERAPEUTIC PROCEDURE
     Dosage: 80 MG, UNK
     Route: 065
  25. DIPEPTIVEN [Concomitant]
     Active Substance: ALANYL GLUTAMINE
     Indication: PRODUCT USED FOR UNKNOWN INDICATION
     Dosage: 40 G, QD
     Route: 042
  26. AZATHIOPRINE. [Suspect]
     Active Substance: AZATHIOPRINE
     Indication: IMMUNOSUPPRESSION
     Dosage: UNK
  27. SOLU-MEDROL [Suspect]
     Active Substance: METHYLPREDNISOLONE SODIUM SUCCINATE
     Indication: IMMUNOSUPPRESSION
     Dosage: 20 MG, BID
  28. SOLU-MEDROL [Suspect]
     Active Substance: METHYLPREDNISOLONE SODIUM SUCCINATE
     Indication: INTESTINAL TRANSPLANT
     Dosage: 40 MG, QD
     Route: 042
  29. CYMEVENE                           /00784201/ [Concomitant]
     Active Substance: GANCICLOVIR
     Indication: INFECTION PROPHYLAXIS
     Dosage: 10 MG/KG, QD
     Route: 065

REACTIONS (3)
  - Candida infection [Unknown]
  - Aspergillus infection [Fatal]
  - Off label use [Unknown]
